FAERS Safety Report 6028539-6 (Version None)
Quarter: 2008Q4

REPORT INFORMATION
  Report Type: 
  Country: None (occurrence: None)
  Receive Date: 20081222
  Receipt Date: 20081028
  Transmission Date: 20090506
  Serious: No
  Sender: FDA-Public Use
  Company Number: US-WYE-H06592308

PATIENT
  Age: 80 Year
  Sex: Female
  Weight: 65.83 kg

DRUGS (9)
  1. PRISTIQ [Suspect]
     Indication: DEPRESSION
     Dosage: 50 MG 1X PER 1 DAY, ORAL
     Route: 048
     Dates: start: 20080615
  2. ATIVAN [Concomitant]
  3. SEROQUEL [Concomitant]
  4. CENTRUM (MULTIVITAMIN/MULTIMINERAL) [Concomitant]
  5. ADVAIR DISKUS 100/50 [Concomitant]
  6. VITAMIN E [Concomitant]
  7. FOSAMAX PLUS D [Concomitant]
  8. ASCORBIC ACID [Concomitant]
  9. CALCIUM (CALCIUM) [Concomitant]

REACTIONS (2)
  - BALANCE DISORDER [None]
  - FATIGUE [None]
